FAERS Safety Report 9400099 (Version 2)
Quarter: 2013Q3

REPORT INFORMATION
  Report Type: Report from Study
  Country: BE (occurrence: BE)
  Receive Date: 20130715
  Receipt Date: 20130717
  Transmission Date: 20140515
  Serious: Yes (Other)
  Sender: FDA-Public Use
  Company Number: BE-VERTEX PHARMACEUTICALS INC-2013-007622

PATIENT
  Sex: Female

DRUGS (6)
  1. TELAPREVIR [Suspect]
     Indication: HEPATITIS C
     Dosage: 375 MG, BID, EVERY 12 HOUR
  2. RIBAVIRIN [Suspect]
     Indication: PRODUCT USED FOR UNKNOWN INDICATION
     Dosage: UNK, BID
  3. RIBAVIRIN [Suspect]
     Dosage: DOSAGE FORM: UNSPECIFIED, RIBAVIRINE DOSE WAS REDUCED TO 2 IN THE MORNING AND 1 IN THE EVENING
     Route: 065
  4. RIBAVIRIN [Suspect]
     Dosage: DOSAGE FORM: UNSPECIFIED, RIBAVIRINE DOSE WAS REDUCED TO 2 IN THE MORNING AND 2 IN THE EVENING
     Route: 065
  5. RIBAVIRIN [Suspect]
     Dosage: DOSAGE FORM: UNSPECIFIED, RIBAVIRINE DOSE WAS REDUCED TO 1 IN THE MORNING AND 1 IN THE EVENING
     Route: 065
  6. PEGASYS [Suspect]
     Indication: PRODUCT USED FOR UNKNOWN INDICATION
     Dosage: DOSAGE FORM: UNSPECIFIED
     Route: 065

REACTIONS (17)
  - Hypokinesia [Unknown]
  - Haemoglobin decreased [Unknown]
  - Chills [Unknown]
  - Pyrexia [Unknown]
  - Glossodynia [Unknown]
  - Decreased appetite [Unknown]
  - Abdominal distension [Unknown]
  - Sleep disorder [Unknown]
  - Oropharyngeal pain [Unknown]
  - Blood count abnormal [Unknown]
  - Swelling [Unknown]
  - Fatigue [Unknown]
  - Paraesthesia [Unknown]
  - Depressed mood [Unknown]
  - Erythema [Unknown]
  - Haemorrhoids [Unknown]
  - Nausea [Recovered/Resolved]
